FAERS Safety Report 9668005 (Version 2)
Quarter: 2013Q4

REPORT INFORMATION
  Report Type: Report from Study
  Country: DE (occurrence: DE)
  Receive Date: 20131104
  Receipt Date: 20131113
  Transmission Date: 20140711
  Serious: Yes (Hospitalization)
  Sender: FDA-Public Use
  Company Number: DE-GLAXOSMITHKLINE-B0936568A

PATIENT
  Sex: Male

DRUGS (10)
  1. PAZOPANIB [Suspect]
     Indication: RENAL CELL CARCINOMA
     Dosage: 800MG PER DAY
     Route: 048
     Dates: start: 20130117
  2. MARCUMAR [Concomitant]
     Dates: start: 19990608
  3. SITAGLIPTIN [Concomitant]
     Dosage: 100G PER DAY
     Dates: start: 19990608
  4. HCT [Concomitant]
     Dosage: 12.5MG PER DAY
     Dates: start: 19990609
  5. ENAHEXAL [Concomitant]
     Dosage: 10MG PER DAY
     Dates: start: 19990608
  6. METOPROLOL [Concomitant]
     Dosage: 200MG PER DAY
     Dates: start: 19990608
  7. ALLOBETA [Concomitant]
     Dosage: 300MG PER DAY
     Dates: start: 19990608
  8. UNKNOWN DRUG [Concomitant]
     Dosage: 10MG PER DAY
     Dates: start: 19990608
  9. NOVALGIN [Concomitant]
     Dosage: 500MG PER DAY
     Dates: start: 19990608
  10. AMLODIPINE [Concomitant]
     Dosage: 5MG PER DAY
     Dates: start: 19990608

REACTIONS (1)
  - Metastases to bone [Recovered/Resolved]
